FAERS Safety Report 13004405 (Version 2)
Quarter: 2016Q4

REPORT INFORMATION
  Report Type: Spontaneous
  Country: JP (occurrence: JP)
  Receive Date: 20161207
  Receipt Date: 20161219
  Transmission Date: 20170207
  Serious: Yes (Life-Threatening, Other)
  Sender: FDA-Public Use
  Company Number: JP-ROCHE-1864564

PATIENT
  Age: 18 Year
  Sex: Female
  Weight: 46 kg

DRUGS (11)
  1. ACETAMINOPHEN. [Concomitant]
     Active Substance: ACETAMINOPHEN
     Dosage: DOSE UNKNOWN, SINGLE USE, AT THE TIME OF THERMAL PAIN
     Route: 065
  2. BAYASPIRIN [Concomitant]
     Active Substance: ASPIRIN
     Indication: TAKAYASU^S ARTERITIS
     Route: 048
     Dates: start: 20160929
  3. PREDNISOLONE. [Suspect]
     Active Substance: PREDNISOLONE
     Indication: TAKAYASU^S ARTERITIS
     Dosage: THE FRACTIONATION DOSE FREQUENCY IS UNCERTAIN. ?DOSE INTERVAL UNCERTAINTY
     Route: 065
     Dates: start: 20160916
  4. FERROMIA [Concomitant]
     Active Substance: FERROUS CITRATE
     Indication: ANAEMIA
     Route: 048
     Dates: start: 20160915
  5. WARFARIN [Concomitant]
     Active Substance: WARFARIN
     Indication: TAKAYASU^S ARTERITIS
     Route: 048
     Dates: start: 20161004
  6. REMICADE [Suspect]
     Active Substance: INFLIXIMAB
     Indication: TAKAYASU^S ARTERITIS
     Dosage: THE FRACTIONATION DOSE FREQUENCY IS UNCERTAIN. ?DOSE INTERVAL UNCERTAINTY?DATE OF LAST DOSE: 19/OCT/
     Route: 065
     Dates: start: 20161006
  7. PARIET [Concomitant]
     Active Substance: RABEPRAZOLE SODIUM
     Indication: PROPHYLAXIS
     Route: 048
     Dates: start: 20160923
  8. ACTEMRA [Suspect]
     Active Substance: TOCILIZUMAB
     Indication: TAKAYASU^S ARTERITIS
     Route: 041
     Dates: start: 20161110, end: 20161110
  9. ARTIST [Concomitant]
     Active Substance: CARVEDILOL
     Indication: TAKAYASU^S ARTERITIS
     Route: 048
     Dates: start: 20160929
  10. RHEUMATREX [Suspect]
     Active Substance: METHOTREXATE SODIUM
     Indication: TAKAYASU^S ARTERITIS
     Dosage: THE FRACTIONATION DOSE FREQUENCY IS UNCERTAIN.?DATE OF LAST DOSE: 08/NOV/2016
     Route: 065
     Dates: start: 20161005
  11. LOXONIN [Concomitant]
     Active Substance: LOXOPROFEN SODIUM
     Dosage: DOSE UNKNOWN, SINGLE USE, AT THE TIME OF THERMAL PAIN
     Route: 065

REACTIONS (4)
  - Epstein-Barr virus infection [Not Recovered/Not Resolved]
  - Hepatitis infectious mononucleosis [Not Recovered/Not Resolved]
  - Epstein-Barr virus associated lymphoma [Unknown]
  - Off label use [Unknown]

NARRATIVE: CASE EVENT DATE: 201611
